FAERS Safety Report 4675968-9 (Version None)
Quarter: 2005Q2

REPORT INFORMATION
  Report Type: 
  Country: None (occurrence: None)
  Receive Date: 20050527
  Receipt Date: 20050420
  Transmission Date: 20051028
  Serious: No
  Sender: FDA-Public Use
  Company Number: US-GLAXOSMITHKLINE-A0555015A

PATIENT
  Age: 50 Year
  Sex: Female

DRUGS (3)
  1. WELLBUTRIN XL [Suspect]
     Indication: DEPRESSION
     Dosage: 150MG PER DAY
     Route: 048
     Dates: start: 20050321, end: 20050413
  2. TRILEPTAL [Concomitant]
  3. PREVACID [Concomitant]

REACTIONS (4)
  - BONE PAIN [None]
  - MOBILITY DECREASED [None]
  - MYALGIA [None]
  - SWELLING [None]
